FAERS Safety Report 14191240 (Version 2)
Quarter: 2017Q4

REPORT INFORMATION
  Report Type: Spontaneous
  Country: JP (occurrence: JP)
  Receive Date: 20171115
  Receipt Date: 20171211
  Transmission Date: 20180321
  Serious: Yes (Hospitalization)
  Sender: FDA-Public Use
  Company Number: JP-PFIZER INC-2017481757

PATIENT
  Age: 7 Year
  Sex: Male

DRUGS (1)
  1. GENOTROPIN GOQUICK 5.3MG [Suspect]
     Active Substance: SOMATROPIN
     Indication: DWARFISM
     Dosage: UNK
     Route: 058
     Dates: start: 201409

REACTIONS (3)
  - Bone development abnormal [Not Recovered/Not Resolved]
  - Tibia fracture [Not Recovered/Not Resolved]
  - Fall [Unknown]

NARRATIVE: CASE EVENT DATE: 20171107
